FAERS Safety Report 8170021-4 (Version None)
Quarter: 2012Q1

REPORT INFORMATION
  Report Type: 
  Country: None (occurrence: None)
  Receive Date: 20120228
  Receipt Date: 20120215
  Transmission Date: 20120608
  Serious: Yes (Hospitalization)
  Sender: FDA-Public Use
  Company Number: DK-AMGEN-DNKSP2011011335

PATIENT
  Age: 60 Year
  Sex: Male
  Weight: 90 kg

DRUGS (10)
  1. ENBREL [Suspect]
     Indication: PRODUCT USED FOR UNKNOWN INDICATION
     Dosage: 50 MG, WEEKLY
     Dates: start: 20100226, end: 20101116
  2. FOLIMET [Concomitant]
     Dosage: 5 MG, 1X/DAY
     Route: 048
  3. REMICADE [Suspect]
     Indication: SERONEGATIVE ARTHRITIS
     Dosage: 300 MG, FRERQUENCY UNKNOWN, GIVEN TOTALLY 4 TIMES
     Route: 042
     Dates: start: 20090907, end: 20091215
  4. CODEINE SUL TAB [Concomitant]
     Dosage: 1 G, 3 TIMES
     Route: 048
  5. IBUPROFEN [Concomitant]
     Dosage: 400 MG, 3XDAY
     Route: 048
  6. ALENDRONATE SODIUM [Concomitant]
     Dosage: 70 MG, WEEKLY
     Route: 048
  7. METHOTREXATE SODIUM [Concomitant]
     Dosage: 25 MG ,WEEKLY
  8. SIMVASTATIN [Concomitant]
     Dosage: 20 MG, DAILY
     Route: 048
  9. PREDNISOLONE [Concomitant]
     Dosage: UNK
  10. CALCIUM [Concomitant]
     Dosage: 1 G, 2X/DAY

REACTIONS (1)
  - LANGERHANS' CELL HISTIOCYTOSIS [None]
